FAERS Safety Report 4367609-5 (Version None)
Quarter: 2004Q2

REPORT INFORMATION
  Report Type: 
  Country: None (occurrence: None)
  Receive Date: 20040526
  Receipt Date: 20040311
  Transmission Date: 20050107
  Serious: No
  Sender: FDA-Public Use
  Company Number: 2004US002066

PATIENT
  Age: 54 Year
  Sex: Female

DRUGS (8)
  1. ALOXI [Suspect]
     Indication: PROPHYLAXIS OF NAUSEA AND VOMITING
     Dosage: 0.25 MG, SINGLE, INTRAVENOUS
     Route: 042
     Dates: start: 20040218, end: 20040309
  2. DEXAMETHASONE [Concomitant]
  3. TAXOTERE [Concomitant]
  4. ZANTAC (RANITIINE HYDROCHLORIDE) [Concomitant]
  5. FOSAMAX [Concomitant]
  6. LOMOTIL [Concomitant]
  7. MAGIC MOUTHWASH [Concomitant]
  8. DARVOCET-N (PARACETAMOL, DEXTROPROPOXYPHENE NAPSILATE) [Concomitant]

REACTIONS (6)
  - ASTHENIA [None]
  - GAIT DISTURBANCE [None]
  - HEADACHE [None]
  - LOSS OF CONTROL OF LEGS [None]
  - SPEECH DISORDER [None]
  - TREMOR [None]
